FAERS Safety Report 18091181 (Version 1)
Quarter: 2020Q3

REPORT INFORMATION
  Report Type: Spontaneous
  Country: US (occurrence: US)
  Receive Date: 20200729
  Receipt Date: 20200729
  Transmission Date: 20201103
  Serious: Yes (Hospitalization)
  Sender: FDA-Public Use
  Company Number: None

PATIENT
  Age: 49 Year
  Sex: Female

DRUGS (9)
  1. MULTIV [Concomitant]
  2. ESTRADIOL. [Concomitant]
     Active Substance: ESTRADIOL
  3. MAGNESIUM [Concomitant]
     Active Substance: MAGNESIUM
  4. DIAZEPAM. [Concomitant]
     Active Substance: DIAZEPAM
  5. AEMOUR THYRO [Concomitant]
  6. NORDITROPIN [Suspect]
     Active Substance: SOMATROPIN
     Indication: HYPOPITUITARISM
     Route: 058
     Dates: start: 20190829
  7. CALICUIM [Concomitant]
  8. HYRDOCORT [Concomitant]
  9. PROGRESTERONE [Concomitant]

REACTIONS (2)
  - Therapy interrupted [None]
  - Hospitalisation [None]

NARRATIVE: CASE EVENT DATE: 20200728
